FAERS Safety Report 14992396 (Version 1)
Quarter: 2018Q2

REPORT INFORMATION
  Report Type: Spontaneous
  Country: US (occurrence: US)
  Receive Date: 20180609
  Receipt Date: 20180609
  Transmission Date: 20180711
  Serious: No
  Sender: FDA-Public Use
  Company Number: US-JNJFOC-20180535179

PATIENT
  Age: 75 Year
  Sex: Female
  Weight: 45.36 kg

DRUGS (3)
  1. LEVOTHYROXINE. [Concomitant]
     Active Substance: LEVOTHYROXINE
     Indication: THYROID DISORDER
     Route: 065
  2. WOMENS ROGAINE UNSCENTED [Suspect]
     Active Substance: MINOXIDIL
     Route: 061
  3. WOMENS ROGAINE UNSCENTED [Suspect]
     Active Substance: MINOXIDIL
     Indication: ALOPECIA
     Dosage: USES A LITTLE LESS THAN 1/2 CAPFUL TO 1/2 CAPFUL EVERY DAY
     Route: 061
     Dates: end: 20180523

REACTIONS (2)
  - Product use in unapproved indication [Unknown]
  - Hair growth abnormal [Not Recovered/Not Resolved]
